FAERS Safety Report 5975702-6 (Version None)
Quarter: 2008Q4

REPORT INFORMATION
  Report Type: 
  Country: None (occurrence: None)
  Receive Date: 20081202
  Receipt Date: 20081126
  Transmission Date: 20090506
  Serious: Yes (Other)
  Sender: FDA-Public Use
  Company Number: PHHY2008BR29950

PATIENT
  Age: 27 Year
  Sex: Female

DRUGS (1)
  1. TEGRETOL [Suspect]
     Dosage: 3 TABLETS/DAY
     Route: 048

REACTIONS (3)
  - AGGRESSION [None]
  - CONVULSION [None]
  - INSOMNIA [None]
